FAERS Safety Report 4522021-0 (Version None)
Quarter: 2004Q4

REPORT INFORMATION
  Report Type: 
  Country: None (occurrence: None)
  Receive Date: 20041209
  Receipt Date: 20040419
  Transmission Date: 20050328
  Serious: Yes (Hospitalization, Other)
  Sender: FDA-Public Use
  Company Number: JP-NOVOPROD-236439

PATIENT
  Age: 28 Year
  Sex: Male
  Weight: 96 kg

DRUGS (13)
  1. NOVOSEVEN [Suspect]
     Indication: HAEMOPHILIA A WITH ANTI FACTOR VIII
     Dosage: 100 UG/KG, SINGLE DOSE
     Route: 042
     Dates: start: 20040124
  2. NOVOSEVEN [Suspect]
     Dosage: 100 UG/KG, SINGLE DOSE
     Dates: start: 20040126
  3. NOVOSEVEN [Suspect]
     Dosage: 100 UG/KG  3 HOURS
     Dates: start: 20040127
  4. NOVOSEVEN [Suspect]
     Dosage: 100 UG/KG, EVERY 3 HOURS
     Dates: start: 20040128
  5. NOVOSEVEN [Suspect]
     Dosage: 100 UG/KG, UNK
     Dates: start: 20040129
  6. NOVOSEVEN [Suspect]
     Dosage: 100 UG/KG, UNK
     Dates: start: 20040129
  7. NOVOSEVEN [Suspect]
     Dosage: 100 UG/KG, UNK
     Dates: start: 20040129
  8. NOVOSEVEN [Suspect]
     Dosage: 100 UG/KG, UNK
     Dates: start: 20040130
  9. NOVOSEVEN [Suspect]
     Dosage: 100 UG/KG, UNK
     Dates: start: 20040130
  10. NOVOSEVEN [Suspect]
     Dosage: 100 UG/KG, UNK
     Dates: start: 20040210
  11. URSO [Concomitant]
     Indication: HEPATITIS C
     Dosage: 6 TAB, QD
     Route: 048
     Dates: end: 20040130
  12. GASCON [Concomitant]
     Indication: ILL-DEFINED DISORDER
     Dosage: 6 TAB, QD
     Route: 048
     Dates: start: 20040129, end: 20040129
  13. TELEMINSOFT [Concomitant]
     Indication: ILL-DEFINED DISORDER
     Dosage: 120 MG, QD
     Route: 048
     Dates: start: 20040130, end: 20040130

REACTIONS (9)
  - ANURIA [None]
  - DIALYSIS [None]
  - GINGIVAL BLEEDING [None]
  - HAEMARTHROSIS [None]
  - HYDRONEPHROSIS [None]
  - POSTRENAL FAILURE [None]
  - RENAL FAILURE ACUTE [None]
  - THROMBOSIS [None]
  - URINARY TRACT OBSTRUCTION [None]
